FAERS Safety Report 16399460 (Version 1)
Quarter: 2019Q2

REPORT INFORMATION
  Report Type: Spontaneous
  Country: US (occurrence: US)
  Receive Date: 20190606
  Receipt Date: 20190606
  Transmission Date: 20190711
  Serious: No
  Sender: FDA-Public Use
  Company Number: US-CELGENEUS-USA-20190510887

PATIENT
  Sex: Female

DRUGS (2)
  1. THALOMID [Suspect]
     Active Substance: THALIDOMIDE
     Indication: OFF LABEL USE
     Dosage: 50 MILLIGRAM
     Route: 048
     Dates: start: 201905
  2. THALOMID [Suspect]
     Active Substance: THALIDOMIDE
     Indication: IRON DEFICIENCY ANAEMIA
     Dosage: 50 MILLIGRAM
     Route: 048
     Dates: start: 201806

REACTIONS (2)
  - Feeling abnormal [Unknown]
  - Fatigue [Unknown]
